FAERS Safety Report 4952349-1 (Version None)
Quarter: 2006Q1

REPORT INFORMATION
  Report Type: 
  Country: None (occurrence: None)
  Receive Date: 20060323
  Receipt Date: 20051130
  Transmission Date: 20060701
  Serious: Yes (Hospitalization)
  Sender: FDA-Public Use
  Company Number: JP-BOEHRINGER INGELHEIM PHARMACEUTICALS, INC.-2005-BP-20808NB

PATIENT
  Sex: Female
  Weight: 45 kg

DRUGS (4)
  1. BI-SIFROL TABLETS [Suspect]
     Indication: PARKINSON'S DISEASE
     Route: 048
     Dates: start: 20040615, end: 20051128
  2. NEODOPASTON [Concomitant]
     Route: 048
     Dates: start: 20010412, end: 20051128
  3. SYMMETREL [Concomitant]
     Route: 048
     Dates: start: 20010726, end: 20050822
  4. DEPAS [Concomitant]
     Route: 048
     Dates: start: 20010109, end: 20051128

REACTIONS (3)
  - BACK PAIN [None]
  - HALLUCINATION [None]
  - HALLUCINATION, VISUAL [None]
